FAERS Safety Report 10725851 (Version 1)
Quarter: 2015Q1

REPORT INFORMATION
  Report Type: Other
  Country: DE (occurrence: DE)
  Receive Date: 20150121
  Receipt Date: 20150121
  Transmission Date: 20150721
  Serious: No
  Sender: FDA-Public Use
  Company Number: DE-LUPIN PHARMACEUTICALS INC.-E2B_00003026

PATIENT
  Age: 75 Year
  Sex: Female
  Weight: 56 kg

DRUGS (1)
  1. IRBESARTAN. [Suspect]
     Active Substance: IRBESARTAN
     Indication: HYPERTENSION
     Route: 048
     Dates: start: 20140916, end: 20140930

REACTIONS (4)
  - Night sweats [Recovered/Resolved]
  - Dizziness [Recovered/Resolved]
  - Diarrhoea [Recovered/Resolved]
  - Nausea [Recovered/Resolved]

NARRATIVE: CASE EVENT DATE: 20140917
